FAERS Safety Report 4493052-4 (Version None)
Quarter: 2004Q4

REPORT INFORMATION
  Report Type: 
  Country: None (occurrence: None)
  Receive Date: 20041101
  Receipt Date: 20041015
  Transmission Date: 20050328
  Serious: Yes (Other)
  Sender: FDA-Public Use
  Company Number: 200410978BVD

PATIENT

DRUGS (1)
  1. LEVITRA [Suspect]

REACTIONS (2)
  - INTESTINAL HAEMORRHAGE [None]
  - URINARY INCONTINENCE [None]
